FAERS Safety Report 7582648-9 (Version None)
Quarter: 2011Q2

REPORT INFORMATION
  Report Type: 
  Country: None (occurrence: None)
  Receive Date: 20110623
  Receipt Date: 20110611
  Transmission Date: 20111010
  Serious: Yes (Hospitalization)
  Sender: FDA-Public Use
  Company Number: 2011AP001213

PATIENT
  Age: 42 Year
  Sex: Male

DRUGS (5)
  1. FLUOXETINE [Suspect]
     Indication: OBSESSIVE-COMPULSIVE DISORDER
     Dosage: 60,80 MG, QD
  2. RISPERIDONE [Concomitant]
  3. QUETIAPINE FUMARATE [Concomitant]
  4. ARIPIPRAZOLE [Suspect]
     Indication: SCHIZOPHRENIA
     Dosage: 10, 15, 20 MG, QD
  5. ARIPIPRAZOLE [Suspect]
     Indication: OBSESSIVE-COMPULSIVE DISORDER
     Dosage: 10, 15, 20 MG, QD

REACTIONS (5)
  - NEUTROPENIA [None]
  - DRUG INTERACTION [None]
  - LEUKOPENIA [None]
  - HALLUCINATION, AUDITORY [None]
  - TOXICITY TO VARIOUS AGENTS [None]
